FAERS Safety Report 5244023-1 (Version None)
Quarter: 2007Q1

REPORT INFORMATION
  Report Type: 
  Country: None (occurrence: None)
  Receive Date: 20070222
  Receipt Date: 20070212
  Transmission Date: 20070707
  Serious: Yes (Hospitalization)
  Sender: FDA-Public Use
  Company Number: US-AVENTIS-200711258GDDC

PATIENT
  Age: 55 Year
  Sex: Male
  Weight: 90 kg

DRUGS (4)
  1. TAXOTERE [Suspect]
     Indication: NON-SMALL CELL LUNG CANCER
     Route: 042
     Dates: start: 20070130, end: 20070130
  2. CISPLATIN [Suspect]
     Indication: NON-SMALL CELL LUNG CANCER
     Dates: start: 20061102, end: 20061102
  3. RADIATION THERAPY [Suspect]
     Indication: NON-SMALL CELL LUNG CANCER
     Dosage: DOSE: EXTERNAL BEAM
     Dates: start: 20061004, end: 20061110
  4. NEULASTA [Concomitant]
     Dates: start: 20070131, end: 20070131

REACTIONS (4)
  - ATRIAL FLUTTER [None]
  - HYPOKALAEMIA [None]
  - PALPITATIONS [None]
  - SINUS TACHYCARDIA [None]
